FAERS Safety Report 6268846-5 (Version None)
Quarter: 2009Q3

REPORT INFORMATION
  Report Type: 
  Country: None (occurrence: None)
  Receive Date: 20090715
  Receipt Date: 20090708
  Transmission Date: 20100115
  Serious: Yes (Hospitalization)
  Sender: FDA-Public Use
  Company Number: US-ELI_LILLY_AND_COMPANY-US200907001556

PATIENT
  Sex: Male

DRUGS (8)
  1. HUMALOG MIX 50/50 [Suspect]
     Dates: start: 20050101
  2. SIMVASTATIN [Concomitant]
  3. BYETTA [Concomitant]
  4. LANTUS [Concomitant]
     Dosage: UNK, EACH EVENING
  5. MULTI-VITAMIN [Concomitant]
  6. ENALAPRIL W/HYDROCHLOROTHIAZIDE [Concomitant]
  7. PLAVIX [Concomitant]
     Dosage: 75 MG, UNK
  8. OMEPRAZOLE [Concomitant]
     Dosage: 20 MG, UNK

REACTIONS (5)
  - LEG AMPUTATION [None]
  - NEUROPATHIC ARTHROPATHY [None]
  - NEUROPATHY PERIPHERAL [None]
  - PRODUCT QUALITY ISSUE [None]
  - TOE AMPUTATION [None]
